FAERS Safety Report 6729617-6 (Version None)
Quarter: 2010Q2

REPORT INFORMATION
  Report Type: 
  Country: None (occurrence: None)
  Receive Date: 20100512
  Receipt Date: 20100429
  Transmission Date: 20101027
  Serious: Yes (Other)
  Sender: FDA-Public Use
  Company Number: 7001660

PATIENT
  Age: 48 Year
  Sex: Male
  Weight: 95 kg

DRUGS (2)
  1. REBIF [Suspect]
     Indication: MULTIPLE SCLEROSIS
     Dosage: 44 MCG, 3 IN 1 WK, SUBCUTANEOUS
     Route: 058
     Dates: start: 20091223
  2. UNSPECIFIED MEDICATIONS (ALL OTHER THERAPEUTIC PRODUCTS) [Concomitant]

REACTIONS (7)
  - BLOOD PRESSURE FLUCTUATION [None]
  - CENTRAL NERVOUS SYSTEM LESION [None]
  - COGNITIVE DISORDER [None]
  - DYSPNOEA [None]
  - FEELING ABNORMAL [None]
  - PARKINSON'S DISEASE [None]
  - SPEECH DISORDER [None]
